FAERS Safety Report 7653635-7 (Version None)
Quarter: 2011Q3

REPORT INFORMATION
  Report Type: 
  Country: None (occurrence: None)
  Receive Date: 20110803
  Receipt Date: 20110803
  Transmission Date: 20111222
  Serious: Yes (Other)
  Sender: FDA-Public Use
  Company Number: None

PATIENT
  Age: 39 Year
  Sex: Female
  Weight: 53.977 kg

DRUGS (2)
  1. LEVOFLOXACIN [Suspect]
     Indication: CROHN'S DISEASE
     Dosage: 1 TABLET
     Route: 048
     Dates: start: 20110726, end: 20110727
  2. LEVOFLOXACIN [Suspect]
     Indication: CONDITION AGGRAVATED
     Dosage: 1 TABLET
     Route: 048
     Dates: start: 20110726, end: 20110727

REACTIONS (3)
  - ARTHRALGIA [None]
  - MOBILITY DECREASED [None]
  - TENDON PAIN [None]
